FAERS Safety Report 7947982-9 (Version None)
Quarter: 2011Q4

REPORT INFORMATION
  Report Type: 
  Country: None (occurrence: None)
  Receive Date: 20111125
  Receipt Date: 20111114
  Transmission Date: 20120403
  Serious: Yes (Other)
  Sender: FDA-Public Use
  Company Number: ES-ACCORD-011276

PATIENT
  Age: 56 Year
  Sex: Female

DRUGS (5)
  1. PANTOPRAZOLE SODIUM [Concomitant]
  2. TACROLIMUS [Suspect]
     Indication: IMMUNOSUPPRESSION
     Dosage: 1.50-MG-1.00 TIMES PER-1.0 DAYS/ORAL
     Route: 048
  3. ALENDRONATE SODIUM [Concomitant]
  4. CALCIUM W/VITAMIN D(CALCIUM W/VITAMIN D) [Concomitant]
  5. PREDNISONE TAB [Concomitant]

REACTIONS (1)
  - OPTIC NEUROPATHY [None]
